FAERS Safety Report 14346833 (Version 1)
Quarter: 2018Q1

REPORT INFORMATION
  Report Type: Spontaneous
  Country: US (occurrence: US)
  Receive Date: 20180103
  Receipt Date: 20180103
  Transmission Date: 20180509
  Serious: Yes (Death)
  Sender: FDA-Public Use
  Company Number: US-PROCTER_AND_GAMBLE-GS17144807

PATIENT
  Age: 8 Month
  Sex: Male

DRUGS (1)
  1. DIPHENHYDRAMINE HCL [Suspect]
     Active Substance: DIPHENHYDRAMINE HYDROCHLORIDE
     Indication: IRRITABILITY
     Dosage: 50 MILLIGRAM
     Route: 048

REACTIONS (9)
  - Circulatory collapse [Fatal]
  - Cyanosis [Unknown]
  - Victim of chemical submission [Unknown]
  - Drug screen positive [Not Recovered/Not Resolved]
  - Toxicity to various agents [Fatal]
  - Overdose [Fatal]
  - Muscle rigidity [Unknown]
  - Product use in unapproved indication [Unknown]
  - Postmortem blood drug level increased [Not Recovered/Not Resolved]
